FAERS Safety Report 11398540 (Version 1)
Quarter: 2015Q3

REPORT INFORMATION
  Report Type: Spontaneous
  Country: None (occurrence: None)
  Receive Date: 20150818
  Receipt Date: 20150818
  Transmission Date: 20151125
  Serious: Yes (Other)
  Sender: FDA-Public Use
  Company Number: None

PATIENT
  Age: 33 Year
  Sex: Female
  Weight: 79.38 kg

DRUGS (4)
  1. CEPHALEXIN. [Suspect]
     Active Substance: CEPHALEXIN
     Indication: POST PROCEDURAL INFECTION
     Dosage: 4 PILLS
     Route: 048
     Dates: start: 20150810, end: 20150816
  2. RELPAX [Concomitant]
     Active Substance: ELETRIPTAN HYDROBROMIDE
  3. CEPHALEXIN. [Suspect]
     Active Substance: CEPHALEXIN
     Indication: PROPHYLAXIS
     Dosage: 4 PILLS
     Route: 048
     Dates: start: 20150810, end: 20150816
  4. MULTI-VITAMIN [Concomitant]
     Active Substance: .ALPHA.-TOCOPHEROL ACETATE, DL-\ASCORBIC ACID\CYANOCOBALAMIN\FLUORIDE ION\FOLIC ACID\NIACIN\PYRIDOXINE\RIBOFLAVIN\THIAMINE\VITAMIN A\VITAMIN D

REACTIONS (5)
  - Odynophagia [None]
  - Cough [None]
  - Dysphagia [None]
  - Oropharyngeal pain [None]
  - Haemoptysis [None]

NARRATIVE: CASE EVENT DATE: 20150817
